FAERS Safety Report 13692916 (Version 3)
Quarter: 2017Q3

REPORT INFORMATION
  Report Type: Report from Study
  Country: US (occurrence: US)
  Receive Date: 20170627
  Receipt Date: 20170802
  Transmission Date: 20171127
  Serious: Yes (Hospitalization)
  Sender: FDA-Public Use
  Company Number: US-ROCHE-1955706

PATIENT
  Age: 11 Year
  Sex: Male
  Weight: 84.3 kg

DRUGS (21)
  1. ZANTAC [Concomitant]
     Active Substance: RANITIDINE HYDROCHLORIDE
     Route: 065
  2. ALBUTEROL. [Concomitant]
     Active Substance: ALBUTEROL
  3. SOLU-MEDROL [Concomitant]
     Active Substance: METHYLPREDNISOLONE SODIUM SUCCINATE
  4. LASIX [Concomitant]
     Active Substance: FUROSEMIDE
  5. CETIRIZINE [Concomitant]
     Active Substance: CETIRIZINE HYDROCHLORIDE
     Route: 065
     Dates: start: 20170322
  6. DIPHENHYDRAMINE. [Concomitant]
     Active Substance: DIPHENHYDRAMINE
     Route: 065
     Dates: start: 20170322
  7. ZYRTEC [Concomitant]
     Active Substance: CETIRIZINE HYDROCHLORIDE
     Route: 065
  8. XOLAIR [Suspect]
     Active Substance: OMALIZUMAB
     Indication: ASTHMA
     Route: 058
     Dates: start: 20170517
  9. XOLAIR [Suspect]
     Active Substance: OMALIZUMAB
     Route: 058
     Dates: start: 20170712
  10. EPINEPHRINE. [Concomitant]
     Active Substance: EPINEPHRINE
     Route: 030
  11. SINGULAIR [Concomitant]
     Active Substance: MONTELUKAST SODIUM
     Route: 065
  12. SUCRALFATE. [Concomitant]
     Active Substance: SUCRALFATE
     Route: 048
  13. SYMBICORT [Concomitant]
     Active Substance: BUDESONIDE\FORMOTEROL FUMARATE DIHYDRATE
     Route: 065
  14. RANITIDINE. [Concomitant]
     Active Substance: RANITIDINE
     Route: 065
     Dates: start: 20170612
  15. PREDNISONE. [Concomitant]
     Active Substance: PREDNISONE
     Route: 065
  16. RANITIDINE. [Concomitant]
     Active Substance: RANITIDINE
     Route: 048
  17. FAMOTIDINE. [Concomitant]
     Active Substance: FAMOTIDINE
     Route: 065
     Dates: start: 20170713
  18. BENADRYL [Concomitant]
     Active Substance: DIPHENHYDRAMINE HYDROCHLORIDE
  19. PREDNISONE. [Concomitant]
     Active Substance: PREDNISONE
     Route: 048
  20. PREDNISONE. [Concomitant]
     Active Substance: PREDNISONE
     Route: 065
  21. EPINEPHRINE. [Concomitant]
     Active Substance: EPINEPHRINE
     Route: 065

REACTIONS (35)
  - Asthma [Unknown]
  - Abdominal pain upper [Unknown]
  - Chest pain [Unknown]
  - Hepatic enzyme increased [Unknown]
  - C-reactive protein increased [Unknown]
  - Constipation [Unknown]
  - Dyspepsia [Unknown]
  - Red cell distribution width increased [Unknown]
  - Rhinovirus infection [Unknown]
  - Wheezing [Unknown]
  - Dyspnoea [Unknown]
  - Blood glucose increased [Unknown]
  - Neutrophil count increased [Unknown]
  - Blood sodium decreased [Unknown]
  - Abdominal pain [Unknown]
  - Nausea [Unknown]
  - Anaphylactic shock [Recovered/Resolved]
  - Respiratory distress [Unknown]
  - Blood alkaline phosphatase decreased [Unknown]
  - Blood chloride decreased [Unknown]
  - Nasal pruritus [Unknown]
  - Ear swelling [Unknown]
  - Sneezing [Unknown]
  - Cough [Unknown]
  - Eye irritation [Unknown]
  - Vomiting [Unknown]
  - Pleural effusion [Unknown]
  - Mouth swelling [Unknown]
  - Lymphocyte count decreased [Unknown]
  - Angioedema [Unknown]
  - White blood cell count increased [Unknown]
  - Headache [Unknown]
  - Alanine aminotransferase increased [Unknown]
  - Sleep disorder [Unknown]
  - Abdominal distension [Unknown]

NARRATIVE: CASE EVENT DATE: 20170712
